FAERS Safety Report 6547157-4 (Version None)
Quarter: 2010Q1

REPORT INFORMATION
  Report Type: 
  Country: None (occurrence: None)
  Receive Date: 20100122
  Receipt Date: 20100113
  Transmission Date: 20100710
  Serious: Yes (Death, Hospitalization)
  Sender: FDA-Public Use
  Company Number: GB-MERCK-0912GBR00019

PATIENT
  Age: 53 Year
  Sex: Male
  Weight: 80 kg

DRUGS (4)
  1. ZOCOR [Suspect]
     Indication: HYPERCHOLESTEROLAEMIA
     Route: 048
     Dates: start: 20070101
  2. MESALAMINE [Concomitant]
     Indication: PROCTOCOLITIS
     Route: 065
     Dates: start: 19950101
  3. ASPIRIN [Concomitant]
     Route: 065
  4. DIPYRIDAMOLE [Concomitant]
     Route: 065

REACTIONS (2)
  - ANTIPHOSPHOLIPID SYNDROME [None]
  - MELAENA [None]
